FAERS Safety Report 5737588-4 (Version None)
Quarter: 2008Q2

REPORT INFORMATION
  Report Type: 
  Country: None (occurrence: None)
  Receive Date: 20080514
  Receipt Date: 20080404
  Transmission Date: 20081010
  Serious: No
  Sender: FDA-Public Use
  Company Number: US-ABBOTT-08P-163-0445795-00

PATIENT
  Sex: Female
  Weight: 50 kg

DRUGS (9)
  1. ZEMPLAR [Suspect]
     Indication: RENAL FAILURE
     Route: 050
     Dates: start: 20080301
  2. CALCITRIOL [Concomitant]
     Indication: MINERAL SUPPLEMENTATION
     Route: 042
     Dates: start: 20080301
  3. SEVELAMER [Concomitant]
     Indication: SUPPLEMENTATION THERAPY
     Route: 048
  4. ZOLPIDEM TARTRATE [Concomitant]
     Indication: INSOMNIA
     Route: 048
  5. MONOXIDIL [Concomitant]
     Indication: ALOPECIA
     Route: 048
  6. PANTOPRAZOLE SODIUM [Concomitant]
     Indication: GASTROOESOPHAGEAL REFLUX DISEASE
     Route: 048
  7. NIFEDIPINE [Concomitant]
     Indication: HYPERTENSION
     Route: 048
  8. ATENOLOL [Concomitant]
     Indication: HEART RATE
     Route: 048
  9. EPOETIN [Concomitant]
     Indication: ANAEMIA
     Route: 042

REACTIONS (1)
  - PRURITUS [None]
